FAERS Safety Report 8190256-4 (Version None)
Quarter: 2012Q1

REPORT INFORMATION
  Report Type: 
  Country: None (occurrence: None)
  Receive Date: 20120305
  Receipt Date: 20120221
  Transmission Date: 20120608
  Serious: Yes (Other)
  Sender: FDA-Public Use
  Company Number: JPI-P-019965

PATIENT
  Age: 44 Year
  Sex: Female

DRUGS (2)
  1. XYREM [Suspect]
     Indication: NARCOLEPSY
     Dosage: 2 GM (1 GM,2 IN 1 D), ORAL ; 7 GM (3.5 GM, 2 IN 1 D), ORAL
     Route: 048
     Dates: start: 20110519
  2. XYREM [Suspect]
     Indication: NARCOLEPSY
     Dosage: 2 GM (1 GM,2 IN 1 D), ORAL ; 7 GM (3.5 GM, 2 IN 1 D), ORAL
     Route: 048
     Dates: start: 20100909

REACTIONS (27)
  - OTITIS EXTERNA [None]
  - DRUG ABUSE [None]
  - ABSCESS [None]
  - ASTHMA [None]
  - EAR INFECTION [None]
  - THROMBOSIS IN DEVICE [None]
  - POLYCHONDRITIS [None]
  - DEPRESSION [None]
  - ABSCESS LIMB [None]
  - HAEMORRHAGE [None]
  - CLOSTRIDIAL INFECTION [None]
  - HAEMORRHOIDS [None]
  - DIZZINESS [None]
  - PAIN IN EXTREMITY [None]
  - HAEMATOMA [None]
  - NASAL SEPTUM ULCERATION [None]
  - PRIMARY IMMUNODEFICIENCY SYNDROME [None]
  - STAPHYLOCOCCAL SKIN INFECTION [None]
  - OEDEMA PERIPHERAL [None]
  - VULVOVAGINAL MYCOTIC INFECTION [None]
  - NAUSEA [None]
  - SINUSITIS [None]
  - HALLUCINATION [None]
  - DEHYDRATION [None]
  - ERYTHEMA [None]
  - BLOOD IMMUNOGLOBULIN G DECREASED [None]
  - EAR INFECTION FUNGAL [None]
